FAERS Safety Report 6217665-4 (Version None)
Quarter: 2009Q2

REPORT INFORMATION
  Report Type: 
  Country: None (occurrence: None)
  Receive Date: 20090608
  Receipt Date: 20090501
  Transmission Date: 20091009
  Serious: Yes (Other)
  Sender: FDA-Public Use
  Company Number: CA-PFIZER INC-2009206701

PATIENT
  Age: 63 Year

DRUGS (17)
  1. DILANTIN [Suspect]
     Indication: EPILEPSY
     Dosage: 100 MG, 3X/DAY
     Route: 048
  2. FUROSEMIDE [Suspect]
     Indication: CARDIAC FAILURE
     Dosage: 160 MG, (MORNING AND NIGHT)
     Route: 048
  3. FUROSEMIDE [Suspect]
     Dosage: 100 MG IN AM; 80MG AT NIGHT
     Route: 048
     Dates: start: 20090423
  4. SYNTHROID [Concomitant]
     Indication: HYPOTHYROIDISM
     Dosage: 50 UG, 1X/DAY
     Dates: start: 20080807
  5. ALENDRONATE SODIUM [Concomitant]
     Indication: OSTEOPOROSIS
     Dosage: 70 MG, WEEKLY
     Dates: start: 20080807
  6. CLOBAZAM [Concomitant]
     Indication: EPILEPSY
     Dosage: 5 MG, 2X/DAY
  7. CLOBAZAM [Concomitant]
     Dosage: 5 MG AM; 10MG AT BEDTIME
  8. RISPERIDONE [Concomitant]
     Indication: ANXIETY
     Dosage: 0.5 TO 1 MG, 1X/DAY AT BEDTIME
     Dates: start: 20080807
  9. RISPERIDONE [Concomitant]
     Indication: INSOMNIA
  10. PANTOPRAZOLE [Concomitant]
     Indication: ABDOMINAL DISCOMFORT
     Dosage: 40 MG, 1X/DAY, AM
     Route: 048
     Dates: start: 20080807
  11. MONOCOR [Concomitant]
     Indication: CARDIAC FAILURE
     Dosage: 2.5 MG, 1X/DAY AM
     Dates: start: 20080807
  12. CALCITE D [Concomitant]
     Indication: OSTEOPOROSIS
     Dosage: 400 MG, 2X/DAY, 12AND6PM
     Dates: start: 20080807
  13. ALDACTONE [Concomitant]
     Indication: CARDIAC FAILURE
     Dosage: 50 MG, 1X/DAY, AM
     Route: 048
     Dates: start: 20081015
  14. CARDURA [Concomitant]
     Dosage: 20 MG, 1X/DAY
  15. VITAMIN B-12 [Concomitant]
     Dosage: UNK
  16. WARFARIN SODIUM [Concomitant]
     Dosage: UNK
  17. POTASSIUM CHLORIDE [Concomitant]
     Indication: CARDIAC FAILURE
     Dosage: 20 MEQ, 1X/DAY
     Route: 048
     Dates: start: 20090430

REACTIONS (3)
  - ANTICONVULSANT DRUG LEVEL DECREASED [None]
  - DRUG INTERACTION [None]
  - EPILEPSY [None]
